FAERS Safety Report 9732975 (Version 1)
Quarter: 2013Q4

REPORT INFORMATION
  Report Type: Report from Study
  Country: US (occurrence: US)
  Receive Date: 20131205
  Receipt Date: 20131205
  Transmission Date: 20140711
  Serious: Yes (Other)
  Sender: FDA-Public Use
  Company Number: US-PURDUE-USA-2013-0109238

PATIENT
  Sex: Female

DRUGS (1)
  1. OXY CR TAB [Suspect]
     Indication: PRODUCT USED FOR UNKNOWN INDICATION
     Dosage: 20 MG, TID
     Route: 048
     Dates: start: 201309

REACTIONS (2)
  - Uterine cancer [Unknown]
  - Bone cancer [Unknown]
